FAERS Safety Report 24732576 (Version 1)
Quarter: 2024Q4

REPORT INFORMATION
  Report Type: Other
  Country: AT (occurrence: AT)
  Receive Date: 20241213
  Receipt Date: 20241213
  Transmission Date: 20250115
  Serious: Yes (Other)
  Sender: TRAVERE THERAPEUTICS
  Company Number: AT-BEH-2024187175

PATIENT
  Age: 50 Year
  Sex: Male

DRUGS (1)
  1. FILSPARI [Suspect]
     Active Substance: SPARSENTAN
     Indication: IgA nephropathy
     Dosage: 200 MG
     Route: 065

REACTIONS (1)
  - Hyperkalaemia [Recovered/Resolved]
